FAERS Safety Report 10273324 (Version 2)
Quarter: 2014Q3

REPORT INFORMATION
  Report Type: Spontaneous
  Country: IT (occurrence: IT)
  Receive Date: 20140702
  Receipt Date: 20140912
  Transmission Date: 20150326
  Serious: Yes (Other)
  Sender: FDA-Public Use
  Company Number: IT-ABBVIE-14K-083-1254772-00

PATIENT
  Age: 39 Year
  Sex: Female

DRUGS (3)
  1. SERENASE [Suspect]
     Active Substance: HALOPERIDOL
     Indication: PSYCHOMOTOR HYPERACTIVITY
     Route: 048
     Dates: start: 20140612, end: 20140617
  2. DEPAKINE CHRONO [Suspect]
     Active Substance: VALPROATE SODIUM
     Indication: PERSONALITY DISORDER
     Route: 048
     Dates: start: 20140612, end: 20140619
  3. SERENASE [Suspect]
     Active Substance: HALOPERIDOL
     Indication: AGITATION

REACTIONS (3)
  - Dyskinesia [Recovering/Resolving]
  - Angioedema [Recovering/Resolving]
  - Tremor [Recovering/Resolving]

NARRATIVE: CASE EVENT DATE: 20140619
